FAERS Safety Report 25450462 (Version 2)
Quarter: 2025Q3

REPORT INFORMATION
  Report Type: Report from Study
  Country: US (occurrence: US)
  Receive Date: 20250618
  Receipt Date: 20250715
  Transmission Date: 20251020
  Serious: Yes (Other)
  Sender: ALEXION PHARMACEUTICALS
  Company Number: 202409USA011329US

PATIENT
  Sex: Female

DRUGS (3)
  1. OLAPARIB [Suspect]
     Active Substance: OLAPARIB
     Indication: Breast cancer
  2. OLAPARIB [Suspect]
     Active Substance: OLAPARIB
  3. LETROZOLE [Concomitant]
     Active Substance: LETROZOLE
     Route: 065

REACTIONS (5)
  - Myelosuppression [Not Recovered/Not Resolved]
  - Anaemia [Unknown]
  - White blood cell count decreased [Recovering/Resolving]
  - Haemoglobin decreased [Not Recovered/Not Resolved]
  - Underdose [Unknown]
